FAERS Safety Report 12545682 (Version 1)
Quarter: 2016Q3

REPORT INFORMATION
  Report Type: Other
  Country: FR (occurrence: FR)
  Receive Date: 20160711
  Receipt Date: 20160711
  Transmission Date: 20161109
  Serious: Yes (Hospitalization)
  Sender: FDA-Public Use
  Company Number: FR-SYMPLMED PHARMACEUTICALS-2016SYMPLMED000263

PATIENT

DRUGS (9)
  1. TAHOR [Suspect]
     Active Substance: ATORVASTATIN CALCIUM
     Indication: DYSLIPIDAEMIA
     Dosage: 20 MG, UNK
     Route: 065
     Dates: start: 201508, end: 201511
  2. FUROSEMIDE. [Concomitant]
     Active Substance: FUROSEMIDE
     Indication: PRODUCT USED FOR UNKNOWN INDICATION
     Dosage: UNK
     Dates: start: 201311
  3. BISOPROLOL [Concomitant]
     Active Substance: BISOPROLOL
     Indication: PRODUCT USED FOR UNKNOWN INDICATION
     Dosage: UNK
     Dates: start: 201311
  4. COVERSYL [Suspect]
     Active Substance: PERINDOPRIL
     Indication: HYPERTENSION
     Dosage: 8 MG, QD
     Route: 048
     Dates: start: 201311, end: 20160222
  5. CORDARONE [Suspect]
     Active Substance: AMIODARONE HYDROCHLORIDE
     Indication: ATRIAL FLUTTER
     Dosage: 200 MG, UNK
     Route: 065
     Dates: start: 201412, end: 201511
  6. PREVISCAN                          /00789001/ [Concomitant]
     Active Substance: FLUINDIONE
     Indication: PRODUCT USED FOR UNKNOWN INDICATION
     Dosage: UNK
     Dates: start: 201311
  7. XATRAL [Concomitant]
     Active Substance: ALFUZOSIN
     Indication: PRODUCT USED FOR UNKNOWN INDICATION
     Dosage: UNK
     Dates: start: 201311
  8. CORDARONE [Suspect]
     Active Substance: AMIODARONE HYDROCHLORIDE
     Dosage: 200 MG, BID
     Route: 048
     Dates: start: 20160126, end: 20160222
  9. TAHOR [Suspect]
     Active Substance: ATORVASTATIN CALCIUM
     Dosage: 20 MG, QD
     Route: 048
     Dates: start: 20160126, end: 20160228

REACTIONS (3)
  - Atrial fibrillation [Recovering/Resolving]
  - Cardiac failure [Recovering/Resolving]
  - Organising pneumonia [Recovering/Resolving]

NARRATIVE: CASE EVENT DATE: 201602
